FAERS Safety Report 6014840-9 (Version None)
Quarter: 2008Q4

REPORT INFORMATION
  Report Type: 
  Country: None (occurrence: None)
  Receive Date: 20081219
  Receipt Date: 20081209
  Transmission Date: 20090506
  Serious: Yes (Other)
  Sender: FDA-Public Use
  Company Number: US-PFIZER INC-2008153241

PATIENT
  Sex: Male
  Weight: 81.633 kg

DRUGS (10)
  1. NEURONTIN [Suspect]
     Indication: ARTHRALGIA
     Dates: start: 20081001, end: 20081201
  2. KLONOPIN [Concomitant]
     Dosage: UNK
  3. CELEBREX [Concomitant]
  4. WELLBUTRIN [Concomitant]
     Dosage: UNK
  5. FLOMAX [Concomitant]
     Dosage: UNK
  6. ALL OTHER THERAPEUTIC PRODUCTS [Concomitant]
     Indication: PROSTATOMEGALY
     Dosage: UNK
  7. DRUG, UNSPECIFIED [Concomitant]
     Dosage: UNK
  8. ASPIRIN [Concomitant]
     Dosage: UNK
  9. LEXAPRO [Concomitant]
  10. VESICARE [Concomitant]
     Indication: MICTURITION URGENCY
     Dosage: UNK

REACTIONS (3)
  - BOWEL MOVEMENT IRREGULARITY [None]
  - DEFAECATION URGENCY [None]
  - HIP ARTHROPLASTY [None]
